FAERS Safety Report 5352762-7 (Version None)
Quarter: 2007Q2

REPORT INFORMATION
  Report Type: 
  Country: None (occurrence: None)
  Receive Date: 20070611
  Receipt Date: 20070529
  Transmission Date: 20071010
  Serious: Yes (Hospitalization)
  Sender: FDA-Public Use
  Company Number: US-ELI_LILLY_AND_COMPANY-US200705007255

PATIENT
  Age: 58 Year
  Sex: Female

DRUGS (10)
  1. PROZAC [Suspect]
     Indication: DEPRESSION
     Dosage: 40 MG, UNK
     Route: 048
  2. CYMBALTA [Suspect]
     Indication: DIABETIC NEUROPATHY
     Dosage: 30 MG, UNK
     Route: 048
  3. METFORMIN HCL [Concomitant]
  4. BYETTA [Concomitant]
  5. THYROID TAB [Concomitant]
  6. HUMULIN /00646001/ [Concomitant]
  7. HUMALOG [Concomitant]
  8. LOVASTATIN [Concomitant]
  9. LEXAPRO [Concomitant]
  10. PROPAFENONE HCL [Concomitant]

REACTIONS (7)
  - ARRHYTHMIA [None]
  - DECREASED APPETITE [None]
  - DRUG INEFFECTIVE [None]
  - HERNIA REPAIR [None]
  - PELVIC MASS [None]
  - RHABDOMYOLYSIS [None]
  - VASCULAR BYPASS GRAFT [None]
